FAERS Safety Report 18500874 (Version 1)
Quarter: 2020Q4

REPORT INFORMATION
  Report Type: Spontaneous
  Country: IT (occurrence: IT)
  Receive Date: 20201113
  Receipt Date: 20201113
  Transmission Date: 20210114
  Serious: Yes (Other)
  Sender: FDA-Public Use
  Company Number: NVSC2020IT297328

PATIENT
  Age: 41 Year
  Sex: Female

DRUGS (2)
  1. ETINILESTRADIOLO/GESTODENE MGI [Suspect]
     Active Substance: ETHINYL ESTRADIOL\GESTODENE
     Indication: CONTRACEPTION
     Dosage: 1 DF, CYCLIC
     Route: 048
     Dates: start: 20190710, end: 20191010
  2. FINGOLIMOD. [Suspect]
     Active Substance: FINGOLIMOD
     Indication: MULTIPLE SCLEROSIS
     Dosage: 1 DF,QD (TABLET)
     Route: 048
     Dates: start: 20190615

REACTIONS (4)
  - Erythema nodosum [Recovered/Resolved]
  - Pain [Recovered/Resolved]
  - Skin lesion [Recovered/Resolved]
  - Oedema peripheral [Recovered/Resolved]

NARRATIVE: CASE EVENT DATE: 20190915
